FAERS Safety Report 24571706 (Version 3)
Quarter: 2024Q4

REPORT INFORMATION
  Report Type: Spontaneous
  Country: PL (occurrence: PL)
  Receive Date: 20241101
  Receipt Date: 20241127
  Transmission Date: 20250115
  Serious: Yes (Death)
  Sender: BOEHRINGER INGELHEIM
  Company Number: PL-BoehringerIngelheim-2024-BI-060110

PATIENT
  Age: 63 Year
  Sex: Male
  Weight: 82 kg

DRUGS (1)
  1. OFEV [Suspect]
     Active Substance: NINTEDANIB
     Indication: Idiopathic pulmonary fibrosis
     Dosage: QUALIFIED TO THE ANTIFIBROTIC TREATMENT WITH NINTEDANIB WITHIN THE DRUG PROGRAM NFZ (NATIONAL HEALTH
     Dates: start: 202303, end: 202304

REACTIONS (5)
  - Idiopathic pulmonary fibrosis [Fatal]
  - Malignant neoplasm progression [Fatal]
  - Abdominal pain [Recovered/Resolved]
  - Nausea [Recovered/Resolved]
  - Vomiting [Recovered/Resolved]

NARRATIVE: CASE EVENT DATE: 20230401
